FAERS Safety Report 8273340-6 (Version None)
Quarter: 2012Q2

REPORT INFORMATION
  Report Type: 
  Country: None (occurrence: None)
  Receive Date: 20120409
  Receipt Date: 20120409
  Transmission Date: 20120825
  Serious: Yes (Hospitalization)
  Sender: FDA-Public Use
  Company Number: None

PATIENT
  Sex: Female
  Weight: 65.5 kg

DRUGS (15)
  1. DALTEPARIN SODIUM [Concomitant]
  2. PALONOSETRON HCL [Concomitant]
  3. DEXAMETHASONE SODIUM PHOSPHATE [Concomitant]
  4. TAXOL [Suspect]
     Dosage: 368 MG
     Dates: end: 20120309
  5. DIPHENHYDRAMINE HCL [Concomitant]
  6. PRBC [Concomitant]
  7. FERROUS SULFATE TAB [Concomitant]
  8. PANTOPRAZOLE SODIUM [Concomitant]
  9. RANITIDINE [Concomitant]
  10. SODIUM PHOSPHATE [Concomitant]
  11. CISPLATIN [Suspect]
     Dosage: 101 MG
     Dates: end: 20120309
  12. GUAIFENESIN [Concomitant]
  13. MAGNESIUM SULFATE [Concomitant]
  14. POTASSIUM CHLORIDE [Concomitant]
  15. SUCRALFATE [Concomitant]

REACTIONS (7)
  - ODYNOPHAGIA [None]
  - OESOPHAGITIS [None]
  - HYPOKALAEMIA [None]
  - DYSPHAGIA [None]
  - WEIGHT DECREASED [None]
  - ANAEMIA [None]
  - CHEST PAIN [None]
